FAERS Safety Report 4316647-7 (Version None)
Quarter: 2004Q1

REPORT INFORMATION
  Report Type: 
  Country: None (occurrence: None)
  Receive Date: 20040311
  Receipt Date: 20040229
  Transmission Date: 20041129
  Serious: Yes (Other)
  Sender: FDA-Public Use
  Company Number: 163-20785-04030024

PATIENT
  Sex: 0

DRUGS (2)
  1. THALIDOMIDE (THALIDOMIDE) (UNKNOWN) [Suspect]
     Indication: MULTIPLE MYELOMA
     Dosage: 200 MG - INCREASED BY 100 MG EVERY 7 DAYS, QD, ORAL
     Route: 048
  2. DEXAMETHASONE [Suspect]
     Indication: MULTIPLE MYELOMA
     Dosage: 20 MG/M2, DAYS 1-5 EVERY 15 DAYS, ORAL
     Route: 048

REACTIONS (7)
  - DEEP VEIN THROMBOSIS [None]
  - HYPOAESTHESIA [None]
  - ILEUS [None]
  - PARAESTHESIA [None]
  - PERIPHERAL SENSORY NEUROPATHY [None]
  - PULMONARY EMBOLISM [None]
  - RASH [None]
